FAERS Safety Report 15636485 (Version 1)
Quarter: 2018Q4

REPORT INFORMATION
  Report Type: Spontaneous
  Country: PT (occurrence: PT)
  Receive Date: 20181120
  Receipt Date: 20181120
  Transmission Date: 20190205
  Serious: Yes (Hospitalization, Disabling, Other)
  Sender: FDA-Public Use
  Company Number: PT-AUROBINDO-AUR-APL-2018-056089

PATIENT
  Age: 84 Year
  Sex: Female
  Weight: 50 kg

DRUGS (5)
  1. LOSARTAN POTASSIUM / HYDROCHLOROTHIAZIDE FILM-COATED TABLETS [Suspect]
     Active Substance: HYDROCHLOROTHIAZIDE\LOSARTAN POTASSIUM
     Indication: PRODUCT USED FOR UNKNOWN INDICATION
     Dosage: UNK
     Route: 065
     Dates: start: 201806
  2. FLUVASTATIN SODIUM. [Concomitant]
     Active Substance: FLUVASTATIN SODIUM
     Indication: PRODUCT USED FOR UNKNOWN INDICATION
     Dosage: UNK
     Route: 065
     Dates: start: 201806
  3. MEBEVERINE [Concomitant]
     Active Substance: MEBEVERINE
     Indication: PRODUCT USED FOR UNKNOWN INDICATION
     Dosage: UNK
     Route: 065
     Dates: start: 201806
  4. JANUVIA [Suspect]
     Active Substance: SITAGLIPTIN PHOSPHATE
     Indication: DIABETES MELLITUS
     Dosage: 100 MILLIGRAM, DAILY
     Route: 048
     Dates: start: 20180614, end: 20180617
  5. FORXIGA [Concomitant]
     Active Substance: DAPAGLIFLOZIN
     Indication: PRODUCT USED FOR UNKNOWN INDICATION
     Dosage: UNK
     Route: 065
     Dates: start: 201806

REACTIONS (4)
  - Optic ischaemic neuropathy [Not Recovered/Not Resolved]
  - Temporal arteritis [Not Recovered/Not Resolved]
  - Diabetic metabolic decompensation [Not Recovered/Not Resolved]
  - Sudden visual loss [Not Recovered/Not Resolved]

NARRATIVE: CASE EVENT DATE: 2018
